FAERS Safety Report 4493579-5 (Version None)
Quarter: 2004Q4

REPORT INFORMATION
  Report Type: 
  Country: None (occurrence: None)
  Receive Date: 20041105
  Receipt Date: 20030804
  Transmission Date: 20050328
  Serious: No
  Sender: FDA-Public Use
  Company Number: US-BRISTOL-MYERS SQUIBB COMPANY-12347266

PATIENT
  Age: 62 Year

DRUGS (1)
  1. MEGACE [Suspect]

REACTIONS (1)
  - NAUSEA [None]
